FAERS Safety Report 21956375 (Version 7)
Quarter: 2025Q3

REPORT INFORMATION
  Report Type: Spontaneous
  Country: EU (occurrence: EU)
  Receive Date: 20230206
  Receipt Date: 20250810
  Transmission Date: 20251021
  Serious: Yes (Death, Other)
  Sender: ALEXION PHARMACEUTICALS
  Company Number: 2023A030207

PATIENT
  Age: 80 Year
  Sex: Male

DRUGS (7)
  1. CALQUENCE [Suspect]
     Active Substance: ACALABRUTINIB
     Indication: Chronic lymphocytic leukaemia
     Dosage: 100 MILLIGRAM, BID
     Dates: start: 20220929, end: 20221019
  2. AUGMENTIN [Concomitant]
     Active Substance: AMOXICILLIN\CLAVULANATE POTASSIUM
  3. PREDNISONE [Concomitant]
     Active Substance: PREDNISONE
  4. LEVOFLOXACIN [Concomitant]
     Active Substance: LEVOFLOXACIN
     Dosage: 500
     Dates: start: 20221011, end: 20221022
  5. FOLIC ACID [Concomitant]
     Active Substance: FOLIC ACID
  6. CEFTRIAXONE [Concomitant]
     Active Substance: CEFTRIAXONE
  7. XARELTO [Concomitant]
     Active Substance: RIVAROXABAN
     Indication: Atrial fibrillation

REACTIONS (11)
  - Aspergillus infection [Fatal]
  - Cerebral aspergillosis [Fatal]
  - Hypothyroidism [Fatal]
  - Herpes dermatitis [Fatal]
  - Monoplegia [Fatal]
  - Dysstasia [Fatal]
  - Diplegia [Fatal]
  - Acne [Fatal]
  - Renal failure [Unknown]
  - Inflammation [Unknown]
  - Bronchopulmonary aspergillosis [Fatal]

NARRATIVE: CASE EVENT DATE: 20221016
